FAERS Safety Report 13283926 (Version 3)
Quarter: 2017Q4

REPORT INFORMATION
  Report Type: Spontaneous
  Country: IT (occurrence: IT)
  Receive Date: 20170301
  Receipt Date: 20171031
  Transmission Date: 20180320
  Serious: Yes (Hospitalization)
  Sender: FDA-Public Use
  Company Number: IT-PFIZER INC-2017082365

PATIENT
  Age: 57 Year
  Sex: Male

DRUGS (5)
  1. ZIRTEC [Concomitant]
     Active Substance: CETIRIZINE HYDROCHLORIDE
     Dosage: 1 DF, UNK
     Route: 048
  2. SALAZOPYRIN EN [Suspect]
     Active Substance: SULFASALAZINE
     Dosage: 4 DF, DAILY
     Route: 048
  3. ORUDIS [Concomitant]
     Active Substance: KETOPROFEN
     Dosage: 2 DF, UNK
     Route: 048
  4. DELTACORTENE [Concomitant]
     Active Substance: PREDNISONE
     Dosage: 2 DF, UNK
     Route: 048
  5. FLUBASON [Concomitant]
     Active Substance: DESOXIMETASONE
     Dosage: 2 DF, UNK
     Route: 003

REACTIONS (8)
  - Throat tightness [Unknown]
  - Syncope [Unknown]
  - Stridor [Unknown]
  - Hyperhidrosis [Unknown]
  - Chest discomfort [Unknown]
  - Pallor [Unknown]
  - Dyspnoea [Unknown]
  - Hypersensitivity [Unknown]

NARRATIVE: CASE EVENT DATE: 20160910
